FAERS Safety Report 10913517 (Version 1)
Quarter: 2015Q1

REPORT INFORMATION
  Report Type: Spontaneous
  Country: US (occurrence: US)
  Receive Date: 20150313
  Receipt Date: 20150313
  Transmission Date: 20150721
  Serious: No
  Sender: FDA-Public Use
  Company Number: US-TEVA-545525USA

PATIENT
  Sex: Female

DRUGS (2)
  1. NUVIGIL [Suspect]
     Active Substance: ARMODAFINIL
     Dates: start: 201410
  2. NUVIGIL [Suspect]
     Active Substance: ARMODAFINIL
     Dates: start: 201410

REACTIONS (3)
  - Drug effect decreased [Unknown]
  - Incorrect dose administered [Unknown]
  - Drug dose omission [Unknown]
